FAERS Safety Report 8408577 (Version 2)
Quarter: 2014Q1

REPORT INFORMATION
  Report Type: Spontaneous
  Country: US (occurrence: US)
  Receive Date: 20120216
  Receipt Date: 20140121
  Transmission Date: 20141002
  Serious: Yes (Other)
  Sender: FDA-Public Use
  Company Number: US-BAYER-2012-014695

PATIENT
  Age: 30 Year
  Sex: Female

DRUGS (7)
  1. YAZ [Suspect]
  2. YASMIN [Suspect]
  3. OCELLA [Suspect]
  4. MORPHINE SULFATE [Concomitant]
     Dosage: 30 MG, UNK
     Dates: start: 20070910, end: 20100802
  5. FLUCONAZOLE [Concomitant]
     Dosage: 200 MG, UNK
     Dates: start: 20070221, end: 20100802
  6. APAP W/HYDROCODONE [Concomitant]
     Dosage: UNK
     Dates: start: 20060817, end: 20101001
  7. ZOLPIDEM TARTRATE [Concomitant]
     Dosage: 10 MG, UNK
     Dates: start: 20070910, end: 20101013

REACTIONS (7)
  - Gallbladder disorder [None]
  - Cholecystitis chronic [None]
  - Pain [None]
  - Gastrointestinal disorder [None]
  - Anxiety [None]
  - Post cholecystectomy syndrome [None]
  - Psychological trauma [None]
